FAERS Safety Report 19881511 (Version 27)
Quarter: 2025Q4

REPORT INFORMATION
  Report Type: Report from Study
  Country: US (occurrence: US)
  Receive Date: 20210925
  Receipt Date: 20251217
  Transmission Date: 20260117
  Serious: Yes (Hospitalization, Other)
  Sender: TAKEDA
  Company Number: US-TAKEDA-US202015566

PATIENT
  Age: 73 Year
  Sex: Female

DRUGS (7)
  1. HUMAN IMMUNOGLOBULIN G [Suspect]
     Active Substance: HUMAN IMMUNOGLOBULIN G
     Indication: Primary immunodeficiency syndrome
     Dosage: 8 GRAM, 1/WEEK
  2. HUMAN IMMUNOGLOBULIN G [Suspect]
     Active Substance: HUMAN IMMUNOGLOBULIN G
     Indication: Immunodeficiency common variable
     Dosage: 6 GRAM, 1/WEEK
  3. HUMAN IMMUNOGLOBULIN G [Suspect]
     Active Substance: HUMAN IMMUNOGLOBULIN G
     Dosage: 6 GRAM, 1/WEEK
  4. HUMAN IMMUNOGLOBULIN G [Suspect]
     Active Substance: HUMAN IMMUNOGLOBULIN G
     Dosage: UNK
  5. COVID-19 VACCINE NOS [Suspect]
     Active Substance: COVID-19 VACCINE
     Indication: COVID-19 immunisation
     Dosage: UNK
  6. SINGULAIR [Concomitant]
     Active Substance: MONTELUKAST SODIUM
     Dosage: UNK UNK, QD
  7. CELEBREX [Concomitant]
     Active Substance: CELECOXIB
     Indication: Inflammation
     Dosage: UNK

REACTIONS (45)
  - Intestinal obstruction [Recovering/Resolving]
  - Weight abnormal [Unknown]
  - Vomiting [Unknown]
  - Oesophageal perforation [Unknown]
  - Pneumonia [Recovering/Resolving]
  - Hyperthyroidism [Unknown]
  - Interstitial lung disease [Unknown]
  - Inflammatory bowel disease [Unknown]
  - Bronchiectasis [Unknown]
  - Diverticulitis [Not Recovered/Not Resolved]
  - Atrial fibrillation [Unknown]
  - COVID-19 [Recovering/Resolving]
  - Skin lesion [Unknown]
  - Illness [Unknown]
  - Weight fluctuation [Unknown]
  - Irritable bowel syndrome [Unknown]
  - Road traffic accident [Unknown]
  - Blood immunoglobulin A decreased [Unknown]
  - Osteoarthritis [Unknown]
  - Sinus disorder [Unknown]
  - General physical health deterioration [Unknown]
  - Osteoporosis [Unknown]
  - Blood pressure abnormal [Unknown]
  - Neck pain [Recovered/Resolved]
  - Feeding disorder [Unknown]
  - Gastrointestinal disorder [Not Recovered/Not Resolved]
  - Underweight [Unknown]
  - Needle issue [Unknown]
  - Arthritis [Unknown]
  - Product packaging issue [Unknown]
  - Product storage error [Unknown]
  - Raynaud^s phenomenon [Unknown]
  - Insurance issue [Unknown]
  - Product use issue [Unknown]
  - Intervertebral disc degeneration [Unknown]
  - Sinusitis [Unknown]
  - Influenza [Unknown]
  - Injection site reaction [Recovered/Resolved]
  - Injection site pain [Recovered/Resolved]
  - Asthenia [Unknown]
  - Pain [Unknown]
  - Cough [Unknown]
  - Fatigue [Unknown]
  - Fibromyalgia [Unknown]
  - Arteriosclerosis [Unknown]

NARRATIVE: CASE EVENT DATE: 20200501
